FAERS Safety Report 22295193 (Version 4)
Quarter: 2023Q2

REPORT INFORMATION
  Report Type: Spontaneous
  Country: NL (occurrence: DE)
  Receive Date: 20230508
  Receipt Date: 20230523
  Transmission Date: 20230722
  Serious: Yes (Death, Hospitalization, Other)
  Sender: FDA-Public Use
  Company Number: DE-OTSUKA-2022_033160

PATIENT
  Age: 11 Year
  Sex: Male

DRUGS (13)
  1. BUSULFAN [Suspect]
     Active Substance: BUSULFAN
     Indication: Prophylaxis against graft versus host disease
     Dosage: HE RECEIVED CONDITIONING REGIMEN WITH FLUDARABINE [FLUDARABIN], IV BUSULFAN 3 DAYS, ALEMTUZUMAB
     Route: 042
  2. BUSULFAN [Suspect]
     Active Substance: BUSULFAN
     Indication: Off label use
  3. PREDNISOLONE [Suspect]
     Active Substance: PREDNISOLONE
     Indication: Graft versus host disease
     Dosage: HE RECEIVED GVHD TREATMENT WITH CICLOSPORIN, PREDNISOLONE, METHYLPREDNISOLONE, TACROLIMUS, INFLIXIMA
     Route: 065
  4. PREDNISOLONE [Suspect]
     Active Substance: PREDNISOLONE
     Indication: Prophylaxis against graft versus host disease
  5. FLUDARABINE PHOSPHATE [Suspect]
     Active Substance: FLUDARABINE PHOSPHATE
     Indication: Prophylaxis against graft versus host disease
     Dosage: HE RECEIVED CONDITIONING REGIMEN WITH FLUDARABINE [FLUDARABIN], IV BUSULFAN 3 DAYS, ALEMTUZUMAB
     Route: 065
  6. MYCOPHENOLATE MOFETIL [Suspect]
     Active Substance: MYCOPHENOLATE MOFETIL
     Indication: Prophylaxis against graft versus host disease
     Dosage: UNK
     Route: 065
  7. ALEMTUZUMAB [Suspect]
     Active Substance: ALEMTUZUMAB
     Indication: Prophylaxis against graft versus host disease
     Dosage: UNK
     Route: 065
  8. CYCLOSPORINE [Suspect]
     Active Substance: CYCLOSPORINE
     Indication: Prophylaxis against graft versus host disease
     Dosage: PROPHYLAXIS WITH CICLOSPORIN, MYCOPHENOLATE MOFETIL AND PREDNISONE FOR PREVENTION OF GVHD
     Route: 065
  9. PREDNISONE [Suspect]
     Active Substance: PREDNISONE
     Indication: Prophylaxis against graft versus host disease
     Dosage: UNK
     Route: 065
  10. PREDNISONE [Suspect]
     Active Substance: PREDNISONE
     Indication: Graft versus host disease
  11. IMATINIB [Suspect]
     Active Substance: IMATINIB
     Indication: Graft versus host disease
     Dosage: UNK
     Route: 065
  12. BUDESONIDE [Concomitant]
     Active Substance: BUDESONIDE
     Indication: Graft versus host disease
     Dosage: UNK
     Route: 065
  13. METHOTREXATE [Concomitant]
     Active Substance: METHOTREXATE
     Indication: Graft versus host disease
     Dosage: PROPHYLAXIS WITH CICLOSPORIN [CYCLOSPORIN A], METHOTREXATE FOR PREVENTION OF GVHD.HE RECEIVED GVHD T
     Route: 065

REACTIONS (11)
  - Pulmonary haemorrhage [Fatal]
  - Aspergillus infection [Fatal]
  - Bronchopulmonary aspergillosis [Fatal]
  - Lactobacillus infection [Fatal]
  - Adenovirus infection [Fatal]
  - Staphylococcal infection [Fatal]
  - BK virus infection [Fatal]
  - Candida infection [Unknown]
  - Drug ineffective [Fatal]
  - Product use in unapproved indication [Unknown]
  - Off label use [Unknown]
